FAERS Safety Report 8425561 (Version 2)
Quarter: 2012Q4

REPORT INFORMATION
  Report Type: Report from Study
  Country: GB (occurrence: GB)
  Receive Date: 20120224
  Receipt Date: 20120927
  Transmission Date: 20130627
  Serious: Yes (Hospitalization)
  Sender: FDA-Public Use
  Company Number: GB-CELGENEUS-167-21880-12021313

PATIENT
  Sex: Female

DRUGS (3)
  1. REVLIMID [Suspect]
     Indication: MYELOMA
     Dosage: 25 Milligram
     Route: 048
     Dates: start: 20111108
  2. DEXAMETHASONE [Suspect]
     Indication: MYELOMA
     Dosage: 40 Milligram
     Route: 048
     Dates: start: 20111108
  3. CYCLOPHOSPHAMID [Suspect]
     Indication: MYELOMA
     Route: 048
     Dates: start: 20111108

REACTIONS (1)
  - Peripheral artery thrombosis [Recovered/Resolved]
